FAERS Safety Report 6652500-1 (Version None)
Quarter: 2010Q1

REPORT INFORMATION
  Report Type: 
  Country: None (occurrence: None)
  Receive Date: 20100324
  Receipt Date: 20100315
  Transmission Date: 20100710
  Serious: Yes (Life-Threatening, Hospitalization, Other)
  Sender: FDA-Public Use
  Company Number: SPV1-2008-00221

PATIENT
  Age: 13 Year
  Sex: Male
  Weight: 20 kg

DRUGS (8)
  1. ELAPRASE [Suspect]
     Indication: MUCOPOLYSACCHARIDOSIS II
     Dosage: 12 MG, 1X/WEEK, IV DRIP
     Route: 041
     Dates: start: 20071207
  2. PHENOBARBITAL TAB [Concomitant]
  3. AMBROXOL HYDROCHLORIDE (AMBROXOL HYDROCHLORIDE) [Concomitant]
  4. ERYTHROMYCIN ETHYLSUCCINATE [Concomitant]
  5. FUDOSTEINE (FUDOSTEINE) [Concomitant]
  6. FUROSEMIDE [Concomitant]
  7. SPIRONOLACTONE [Concomitant]
  8. SODIUM CHLORIDE 0.9% [Concomitant]

REACTIONS (2)
  - ANAPHYLACTOID REACTION [None]
  - INFUSION RELATED REACTION [None]
